FAERS Safety Report 7061878-9 (Version None)
Quarter: 2010Q4

REPORT INFORMATION
  Report Type: 
  Country: None (occurrence: None)
  Receive Date: 20101026
  Receipt Date: 20101015
  Transmission Date: 20110411
  Serious: No
  Sender: FDA-Public Use
  Company Number: US-B.I. PHARMACEUTICALS,INC./RIDGEFIELD-2010-BP-10734BP

PATIENT
  Age: 54 Year
  Sex: Male

DRUGS (4)
  1. MICARDIS [Suspect]
     Dates: end: 20100517
  2. DIAZEPAM [Concomitant]
     Route: 048
     Dates: start: 20050101
  3. VERAPAMIL [Concomitant]
     Dosage: 240 MG
     Route: 048
     Dates: start: 20050101
  4. NEXIUM [Concomitant]
     Route: 048
     Dates: start: 20050101

REACTIONS (4)
  - ARTHRALGIA [None]
  - BACK PAIN [None]
  - BLOOD POTASSIUM INCREASED [None]
  - MYALGIA [None]
